FAERS Safety Report 9702883 (Version 2)
Quarter: 2014Q2

REPORT INFORMATION
  Report Type: Spontaneous
  Country: BE (occurrence: BE)
  Receive Date: 20131121
  Receipt Date: 20140422
  Transmission Date: 20141212
  Serious: Yes (Other)
  Sender: FDA-Public Use
  Company Number: BE-ABBVIE-13P-013-1169783-00

PATIENT
  Sex: Male
  Weight: 68 kg

DRUGS (1)
  1. HUMIRA [Suspect]
     Indication: PSORIASIS
     Dates: start: 20090910

REACTIONS (2)
  - Renal failure [Unknown]
  - Renal impairment [Recovering/Resolving]
